FAERS Safety Report 14110695 (Version 1)
Quarter: 2017Q4

REPORT INFORMATION
  Report Type: Spontaneous
  Country: US (occurrence: None)
  Receive Date: 20171019
  Receipt Date: 20171019
  Transmission Date: 20180321
  Serious: No
  Sender: FDA-Public Use
  Company Number: None

PATIENT
  Sex: Female
  Weight: 82.55 kg

DRUGS (2)
  1. METHOTREXATE. [Suspect]
     Active Substance: METHOTREXATE
     Indication: RHEUMATOID ARTHRITIS
     Dates: start: 20170918
  2. OTREXUP [Suspect]
     Active Substance: METHOTREXATE
     Route: 058
     Dates: start: 20170918

REACTIONS (9)
  - Stomatitis [None]
  - Musculoskeletal stiffness [None]
  - Insomnia [None]
  - Dyspnoea [None]
  - Vision blurred [None]
  - Asthenia [None]
  - Diarrhoea [None]
  - Fatigue [None]
  - Headache [None]
